FAERS Safety Report 8874052 (Version 1)
Quarter: 2012Q4

REPORT INFORMATION
  Report Type: 
  Country: KR (occurrence: KR)
  Receive Date: 20121023
  Receipt Date: 20121023
  Transmission Date: 20130627
  Serious: Yes (Hospitalization)
  Sender: FDA-Public Use
  Company Number: PHHY2012KR092949

PATIENT
  Age: 63 Year
  Sex: Male

DRUGS (10)
  1. DEXAMETHASONE [Suspect]
     Indication: TUBERCULOSIS
     Dosage: 12 mg, QD
  2. DEXAMETHASONE [Suspect]
     Dosage: 20 mg, QD
  3. DEXAMETHASONE [Suspect]
     Dosage: 12 mg, QD
  4. DEXAMETHASONE [Suspect]
     Dosage: 6 mg, QD
  5. DEXAMETHASONE [Suspect]
     Dosage: 4 mg, QD
  6. DEXAMETHASONE [Suspect]
     Dosage: 8 mg, QD
  7. ISONIAZID [Concomitant]
     Indication: TUBERCULOSIS
  8. RIFAMPICIN [Concomitant]
     Indication: TUBERCULOSIS
  9. ETHAMBUTOL [Concomitant]
     Indication: TUBERCULOSIS
  10. PYRAZINAMIDE [Concomitant]
     Indication: TUBERCULOSIS

REACTIONS (12)
  - Paradoxical drug reaction [Recovered/Resolved]
  - Respiratory distress [Recovered/Resolved]
  - Meningitis tuberculous [None]
  - Hydrocephalus [Recovered/Resolved]
  - Somnolence [Recovered/Resolved]
  - Mental status changes [Recovered/Resolved]
  - Cognitive disorder [Recovered/Resolved]
  - Nervous system disorder [Recovered/Resolved]
  - Ataxia [Recovered/Resolved]
  - Meningeal disorder [Recovered/Resolved]
  - Altered state of consciousness [Recovered/Resolved]
  - Memory impairment [Recovering/Resolving]
